FAERS Safety Report 7303681-8 (Version None)
Quarter: 2011Q1

REPORT INFORMATION
  Report Type: 
  Country: None (occurrence: None)
  Receive Date: 20110221
  Receipt Date: 20110214
  Transmission Date: 20110831
  Serious: Yes (Hospitalization, Other)
  Sender: FDA-Public Use
  Company Number: US-ROCHE-734035

PATIENT
  Sex: Male
  Weight: 85.7 kg

DRUGS (9)
  1. BETA-VAL [Concomitant]
  2. ACCUTANE [Suspect]
     Route: 065
     Dates: start: 19920101
  3. BENZAMYCIN [Concomitant]
  4. E.E.S. [Concomitant]
  5. SALAC [Concomitant]
     Dosage: WASH ONCE OR TWICE DAILY
  6. NITROGLYCERIN [Concomitant]
     Dosage: DOSE: 40 SEC UVC
  7. ACCUTANE [Suspect]
     Dosage: 40 MG 1 BID ON EVEN DAYS AND 1 DAILY ON ODD DAYS
     Route: 065
     Dates: start: 19940203
  8. ACCUTANE [Suspect]
     Route: 065
     Dates: start: 19940518, end: 19940101
  9. ACCUTANE [Suspect]
     Route: 065
     Dates: start: 19971015

REACTIONS (5)
  - PEPTIC ULCER [None]
  - COLITIS ULCERATIVE [None]
  - GASTROINTESTINAL DISORDER [None]
  - GASTROINTESTINAL INJURY [None]
  - IRRITABLE BOWEL SYNDROME [None]
